FAERS Safety Report 6841553-3 (Version None)
Quarter: 2010Q3

REPORT INFORMATION
  Report Type: 
  Country: None (occurrence: None)
  Receive Date: 20100714
  Receipt Date: 20070824
  Transmission Date: 20110219
  Serious: No
  Sender: FDA-Public Use
  Company Number: US-PFIZER INC-2007055743

PATIENT
  Sex: Female
  Weight: 68.9 kg

DRUGS (7)
  1. CHANTIX [Suspect]
     Indication: SMOKING CESSATION THERAPY
     Dates: start: 20070618
  2. PROZAC [Concomitant]
  3. BUSPIRONE HYDROCHLORIDE [Concomitant]
  4. LUNESTA [Concomitant]
  5. MONTELUKAST SODIUM [Concomitant]
  6. OXYCODONE HCL [Concomitant]
  7. ACETYLSALICYLIC ACID [Concomitant]

REACTIONS (4)
  - DISORIENTATION [None]
  - DYSGEUSIA [None]
  - NAUSEA [None]
  - PARAESTHESIA ORAL [None]
